FAERS Safety Report 25577257 (Version 2)
Quarter: 2025Q3

REPORT INFORMATION
  Report Type: Spontaneous
  Country: JP (occurrence: JP)
  Receive Date: 20250718
  Receipt Date: 20250728
  Transmission Date: 20251021
  Serious: Yes (Death, Other)
  Sender: BRISTOL-MYERS SQUIBB COMPANY
  Company Number: JP-BRISTOL-MYERS SQUIBB COMPANY-2025-101132

PATIENT

DRUGS (4)
  1. YERVOY [Suspect]
     Active Substance: IPILIMUMAB
     Indication: Renal cancer
     Route: 041
  2. OPDIVO [Suspect]
     Active Substance: NIVOLUMAB
     Indication: Renal cancer
  3. AXITINIB [Suspect]
     Active Substance: AXITINIB
     Indication: Renal cancer
  4. SUNITINIB [Suspect]
     Active Substance: SUNITINIB
     Indication: Renal cancer

REACTIONS (2)
  - Death [Fatal]
  - Adverse event [Unknown]
